FAERS Safety Report 8351105-4 (Version None)
Quarter: 2012Q2

REPORT INFORMATION
  Report Type: 
  Country: None (occurrence: None)
  Receive Date: 20120510
  Receipt Date: 20120501
  Transmission Date: 20120825
  Serious: No
  Sender: FDA-Public Use
  Company Number: US-B.I. PHARMACEUTICALS,INC./RIDGEFIELD-2012-BP-01940BP

PATIENT
  Sex: Female

DRUGS (13)
  1. AGGRENOX [Suspect]
     Indication: TRANSIENT ISCHAEMIC ATTACK
     Route: 048
     Dates: start: 20111122
  2. SIMVASTATIN [Concomitant]
     Indication: BLOOD CHOLESTEROL INCREASED
     Dosage: 10 MG
     Route: 048
     Dates: start: 20100101
  3. COZAAR [Concomitant]
  4. PROBIOTIC [Concomitant]
     Route: 048
     Dates: start: 20111201
  5. CLONAZEPAM [Concomitant]
     Indication: NAUSEA
     Dosage: 0.5 MG
     Route: 048
  6. LOSARTAN POTASSIUM [Concomitant]
     Indication: HYPERTENSION
     Dosage: 100 MG
     Route: 048
     Dates: start: 20110101
  7. CALCIUM [Concomitant]
     Indication: PROPHYLAXIS
     Route: 048
  8. VITAMIN D [Concomitant]
     Indication: PROPHYLAXIS
     Route: 048
  9. MULTI-VITAMIN [Concomitant]
     Indication: PROPHYLAXIS
     Route: 048
     Dates: start: 20110101
  10. TRAZODONE HCL [Concomitant]
     Indication: SLEEP DISORDER
     Route: 048
     Dates: start: 20110101
  11. CALCIUM WITH VITAMIN D-3 [Concomitant]
     Indication: PROPHYLAXIS
     Route: 048
  12. KLONOPIN [Concomitant]
     Dosage: 0.5 MG
     Route: 048
  13. ZOCOR [Concomitant]

REACTIONS (7)
  - ASTHENIA [None]
  - GAIT DISTURBANCE [None]
  - CHILLS [None]
  - HOT FLUSH [None]
  - NAUSEA [None]
  - DIZZINESS [None]
  - MUSCULAR WEAKNESS [None]
